FAERS Safety Report 6710553-6 (Version None)
Quarter: 2010Q2

REPORT INFORMATION
  Report Type: 
  Country: None (occurrence: None)
  Receive Date: 20100504
  Receipt Date: 20100427
  Transmission Date: 20101027
  Serious: Yes (Other)
  Sender: FDA-Public Use
  Company Number: US-WYE-H14837510

PATIENT

DRUGS (1)
  1. MYLOTARG [Suspect]
     Dosage: NOT PROVIDED
     Route: 042
     Dates: start: 20100426, end: 20100426

REACTIONS (1)
  - INFUSION RELATED REACTION [None]
